FAERS Safety Report 9229782 (Version 2)
Quarter: 2013Q3

REPORT INFORMATION
  Report Type: Spontaneous
  Country: US (occurrence: US)
  Receive Date: 20130415
  Receipt Date: 20130911
  Transmission Date: 20140515
  Serious: No
  Sender: FDA-Public Use
  Company Number: US-BIOGENIDEC-2013BI032565

PATIENT
  Age: 56 Year
  Sex: Female

DRUGS (1)
  1. TYSABRI [Suspect]
     Indication: MULTIPLE SCLEROSIS
     Route: 042
     Dates: start: 20120206

REACTIONS (6)
  - Sinus disorder [Unknown]
  - Hyperhidrosis [Not Recovered/Not Resolved]
  - Stress [Unknown]
  - Insomnia [Recovered/Resolved]
  - Sinusitis [Unknown]
  - Fatigue [Recovered/Resolved]
